FAERS Safety Report 19152483 (Version 1)
Quarter: 2021Q2

REPORT INFORMATION
  Report Type: Report from Study
  Country: BR (occurrence: BR)
  Receive Date: 20210419
  Receipt Date: 20210419
  Transmission Date: 20210717
  Serious: Yes (Life-Threatening, Hospitalization, Other)
  Sender: FDA-Public Use
  Company Number: NVSC2021BR084520

PATIENT
  Sex: Female

DRUGS (11)
  1. LETROZOLE. [Concomitant]
     Active Substance: LETROZOLE
     Indication: PRODUCT USED FOR UNKNOWN INDICATION
     Dosage: UNK
     Route: 065
  2. FASLODEX [Concomitant]
     Active Substance: FULVESTRANT
     Indication: PRODUCT USED FOR UNKNOWN INDICATION
     Dosage: UNK
     Route: 065
  3. ANASTROZOLE. [Concomitant]
     Active Substance: ANASTROZOLE
     Indication: PRODUCT USED FOR UNKNOWN INDICATION
     Dosage: UNK
     Route: 065
  4. TAMOXIFEN [Concomitant]
     Active Substance: TAMOXIFEN
     Indication: PRODUCT USED FOR UNKNOWN INDICATION
     Dosage: UNK
     Route: 065
     Dates: start: 2017
  5. AVASTIN [Concomitant]
     Active Substance: BEVACIZUMAB
     Indication: CHEMOTHERAPY
     Dosage: UNK (EVERY 15 DAYS)
     Route: 065
     Dates: start: 202010
  6. TAXOL [Concomitant]
     Active Substance: PACLITAXEL
     Indication: CHEMOTHERAPY
     Dosage: UNK
     Route: 065
     Dates: start: 202010
  7. FULVESTRANT. [Concomitant]
     Active Substance: FULVESTRANT
     Dosage: UNK
     Route: 065
     Dates: start: 2018
  8. PROLIA [Concomitant]
     Active Substance: DENOSUMAB
     Indication: BONE DISORDER
     Dosage: UNK
     Route: 065
  9. FULVESTRANT. [Concomitant]
     Active Substance: FULVESTRANT
     Indication: PRODUCT USED FOR UNKNOWN INDICATION
     Dosage: UNK
     Route: 065
     Dates: start: 2007
  10. ZOMETA [Suspect]
     Active Substance: ZOLEDRONIC ACID
     Indication: PRODUCT USED FOR UNKNOWN INDICATION
     Dosage: UNK
     Route: 065
     Dates: start: 2014
  11. FULVESTRANT. [Concomitant]
     Active Substance: FULVESTRANT
     Dosage: UNK
     Route: 065
     Dates: start: 2014

REACTIONS (21)
  - Fms-like tyrosine kinase 3 positive [Unknown]
  - Neuropathy peripheral [Recovered/Resolved]
  - Cell marker increased [Unknown]
  - Erythema [Unknown]
  - Vascular pain [Unknown]
  - Bone cancer [Unknown]
  - Osteonecrosis [Unknown]
  - Hypersensitivity [Unknown]
  - Malaise [Unknown]
  - Feeling abnormal [Unknown]
  - Pyrexia [Unknown]
  - Weight increased [Unknown]
  - Extrasystoles [Unknown]
  - Progesterone receptor assay positive [Unknown]
  - Skin papilloma [Unknown]
  - Lymphadenopathy [Unknown]
  - Bone disorder [Unknown]
  - Vein disorder [Unknown]
  - Metastases to skin [Unknown]
  - Metastases to bone [Unknown]
  - Oestrogen receptor assay positive [Unknown]

NARRATIVE: CASE EVENT DATE: 2014
